FAERS Safety Report 5356526-X (Version None)
Quarter: 2007Q2

REPORT INFORMATION
  Report Type: 
  Country: None (occurrence: None)
  Receive Date: 20070530
  Receipt Date: 20070102
  Transmission Date: 20071010
  Serious: Yes (Other)
  Sender: FDA-Public Use
  Company Number: US200608006484

PATIENT
  Age: 41 Year
  Sex: Female
  Weight: 61.2 kg

DRUGS (3)
  1. ZYPREXA [Suspect]
     Dosage: 25 MG
     Dates: start: 20020101, end: 20040101
  2. SEROQUEL [Concomitant]
  3. WELLBUTRIN [Concomitant]

REACTIONS (8)
  - ACETONAEMIA [None]
  - BLOOD CHOLESTEROL INCREASED [None]
  - BLOOD TRIGLYCERIDES INCREASED [None]
  - DIABETES MELLITUS [None]
  - DIABETIC COMA [None]
  - DIABETIC KETOACIDOSIS [None]
  - KETONURIA [None]
  - METABOLIC DISORDER [None]
